FAERS Safety Report 18527310 (Version 1)
Quarter: 2020Q4

REPORT INFORMATION
  Report Type: Spontaneous
  Country: US (occurrence: US)
  Receive Date: 20201120
  Receipt Date: 20201120
  Transmission Date: 20210114
  Serious: Yes (Hospitalization)
  Sender: FDA-Public Use
  Company Number: None

PATIENT
  Sex: Male

DRUGS (8)
  1. FUROSEMIDE. [Concomitant]
     Active Substance: FUROSEMIDE
  2. ELIQUIS [Concomitant]
     Active Substance: APIXABAN
  3. REPATHA [Suspect]
     Active Substance: EVOLOCUMAB
     Indication: HYPERLIPIDAEMIA
     Route: 058
     Dates: start: 20200331
  4. CEFDINIR. [Concomitant]
     Active Substance: CEFDINIR
  5. ALLOPURINOL. [Concomitant]
     Active Substance: ALLOPURINOL
  6. TAMSULOSIN [Concomitant]
     Active Substance: TAMSULOSIN
  7. AZITHROMYCIN ANHYDROUS. [Concomitant]
     Active Substance: AZITHROMYCIN ANHYDROUS
  8. DEXAMETHASON [Concomitant]
     Active Substance: DEXAMETHASONE

REACTIONS (2)
  - Therapy interrupted [None]
  - COVID-19 [None]
